FAERS Safety Report 8976225 (Version 1)
Quarter: 2012Q4

REPORT INFORMATION
  Report Type: 
  Country: US (occurrence: US)
  Receive Date: 20121220
  Receipt Date: 20121220
  Transmission Date: 20130627
  Serious: No
  Sender: FDA-Public Use
  Company Number: US-ASTRAZENECA-2012SE91731

PATIENT
  Age: 54 Year
  Sex: Female
  Weight: 66.7 kg

DRUGS (4)
  1. CRESTOR [Suspect]
     Indication: BLOOD CHOLESTEROL INCREASED
     Route: 048
  2. ZOLOFT [Concomitant]
     Indication: DEPRESSION
  3. TOPAMAX [Concomitant]
     Indication: NEURALGIA
  4. HYDROCODON [Concomitant]
     Indication: BACK PAIN

REACTIONS (2)
  - Anxiety [Unknown]
  - Pregnancy test false positive [Unknown]
